FAERS Safety Report 17754387 (Version 1)
Quarter: 2020Q2

REPORT INFORMATION
  Report Type: Spontaneous
  Country: GB (occurrence: VN)
  Receive Date: 20200507
  Receipt Date: 20200507
  Transmission Date: 20200714
  Serious: Yes (Other)
  Sender: FDA-Public Use
  Company Number: VN-ASTELLAS-2020US015528

PATIENT
  Age: 58 Year
  Sex: Female

DRUGS (1)
  1. TARCEVA [Suspect]
     Active Substance: ERLOTINIB HYDROCHLORIDE
     Indication: LUNG CANCER METASTATIC
     Dosage: UNK UNK, UNKNOWN FREQ.(TAKING FOR 11 MONTHS)
     Route: 048

REACTIONS (3)
  - Hemiparesis [Unknown]
  - Asthenia [Unknown]
  - Drug resistance [Unknown]
